FAERS Safety Report 7246990-3 (Version None)
Quarter: 2011Q1

REPORT INFORMATION
  Report Type: 
  Country: None (occurrence: None)
  Receive Date: 20110127
  Receipt Date: 20110119
  Transmission Date: 20110831
  Serious: Yes (Hospitalization)
  Sender: FDA-Public Use
  Company Number: FR-ASTRAZENECA-2010SE48742

PATIENT
  Sex: Male

DRUGS (7)
  1. APROVEL [Suspect]
     Route: 048
     Dates: start: 20100720, end: 20100928
  2. SOLUPRED [Concomitant]
  3. AMLOR [Suspect]
     Route: 048
     Dates: start: 20100419, end: 20100928
  4. MOPRAL [Suspect]
     Route: 048
     Dates: start: 20100419, end: 20100928
  5. MYFORTIC [Concomitant]
  6. CERTICAN [Concomitant]
  7. TENORMIN [Suspect]
     Dosage: DAILY
     Route: 048
     Dates: start: 20100428, end: 20100922

REACTIONS (1)
  - HEPATITIS [None]
